FAERS Safety Report 8378332-4 (Version None)
Quarter: 2012Q2

REPORT INFORMATION
  Report Type: 
  Country: None (occurrence: None)
  Receive Date: 20120522
  Receipt Date: 20120515
  Transmission Date: 20120825
  Serious: Yes (Death, Hospitalization)
  Sender: FDA-Public Use
  Company Number: IT-CELGENEUS-083-21880-12032911

PATIENT
  Sex: Female

DRUGS (4)
  1. ALLOPURINOL [Concomitant]
     Dosage: 300 MILLIGRAM
     Route: 048
     Dates: start: 20111114, end: 20111120
  2. REVLIMID [Suspect]
     Indication: MYELOMA RECURRENCE
     Dosage: 25 MILLIGRAM
     Route: 048
     Dates: start: 20111114, end: 20111120
  3. DEXAMETHASONE SODIUM PHOSPHATE [Concomitant]
     Dosage: 40 MILLIGRAM
     Route: 048
     Dates: start: 20111114, end: 20111114
  4. ENOXAPARIN SODIUM [Concomitant]
     Dosage: 4000 IU (INTERNATIONAL UNIT)
     Route: 058
     Dates: start: 20111114, end: 20111120

REACTIONS (5)
  - PNEUMONIA [None]
  - MULTIPLE MYELOMA [None]
  - SEPSIS [None]
  - RESPIRATORY FAILURE [None]
  - CARDIAC FAILURE [None]
